FAERS Safety Report 16403475 (Version 2)
Quarter: 2019Q2

REPORT INFORMATION
  Report Type: Spontaneous
  Country: FR (occurrence: FR)
  Receive Date: 20190607
  Receipt Date: 20190614
  Transmission Date: 20190711
  Serious: Yes (Other)
  Sender: FDA-Public Use
  Company Number: FR-ACCORD-131904

PATIENT
  Age: 70 Year
  Sex: Female
  Weight: 75 kg

DRUGS (3)
  1. CHOLURSO [Concomitant]
     Active Substance: URSODIOL
     Route: 048
  2. METFORMIN [Concomitant]
     Active Substance: METFORMIN HYDROCHLORIDE
     Indication: TYPE 2 DIABETES MELLITUS
     Route: 048
  3. FUROSEMIDE. [Suspect]
     Active Substance: FUROSEMIDE
     Indication: FLUID RETENTION
     Route: 048
     Dates: start: 1970, end: 2019

REACTIONS (3)
  - Therapy cessation [Recovered/Resolved]
  - Renal tubular disorder [Not Recovered/Not Resolved]
  - Oedema [Recovered/Resolved]

NARRATIVE: CASE EVENT DATE: 2019
